FAERS Safety Report 9801199 (Version 1)
Quarter: 2014Q1

REPORT INFORMATION
  Report Type: Report from Study
  Country: IL (occurrence: IL)
  Receive Date: 20140107
  Receipt Date: 20140107
  Transmission Date: 20141002
  Serious: Yes (Hospitalization)
  Sender: FDA-Public Use
  Company Number: IL-SA-2014SA000987

PATIENT
  Age: 79 Year
  Sex: Female
  Weight: 78 kg

DRUGS (9)
  1. MULTAQ [Suspect]
     Indication: ATRIAL FIBRILLATION
     Route: 065
     Dates: start: 20131128
  2. RANOLAZINE [Suspect]
     Indication: ATRIAL FIBRILLATION
     Route: 048
     Dates: start: 20131128
  3. CARDILOC [Concomitant]
     Route: 065
     Dates: start: 201304
  4. RECITAL [Concomitant]
     Route: 065
  5. CONTROLOC [Concomitant]
     Route: 065
  6. ENALAPRIL [Concomitant]
     Route: 065
     Dates: start: 20090306
  7. FUSID [Concomitant]
     Route: 065
     Dates: start: 2013
  8. COUMADIN [Concomitant]
     Route: 065
     Dates: start: 200807
  9. SIMVASTATIN [Concomitant]
     Route: 065
     Dates: start: 2011

REACTIONS (1)
  - International normalised ratio increased [Recovering/Resolving]
